FAERS Safety Report 9393566 (Version 1)
Quarter: 2013Q3

REPORT INFORMATION
  Report Type: Spontaneous
  Country: US (occurrence: US)
  Receive Date: 20130710
  Receipt Date: 20130710
  Transmission Date: 20140515
  Serious: Yes (Hospitalization)
  Sender: FDA-Public Use
  Company Number: US-GLAXOSMITHKLINE-A0869053A

PATIENT
  Age: 78 Year
  Sex: Female
  Weight: 65.9 kg

DRUGS (6)
  1. AVANDIA [Suspect]
     Indication: DIABETES MELLITUS
     Dosage: 4MG PER DAY
     Route: 048
  2. ZOCOR [Concomitant]
  3. AMIODARONE [Concomitant]
  4. HCTZ [Concomitant]
  5. GLUCOTROL [Concomitant]
  6. SYNTHROID [Concomitant]

REACTIONS (8)
  - Myocardial infarction [Not Recovered/Not Resolved]
  - Acute coronary syndrome [Unknown]
  - Cardiac failure [Unknown]
  - Coronary artery disease [Unknown]
  - Dizziness [Unknown]
  - Dizziness [Unknown]
  - Balance disorder [Unknown]
  - Laryngeal injury [Unknown]
